FAERS Safety Report 23607055 (Version 1)
Quarter: 2024Q1

REPORT INFORMATION
  Report Type: Spontaneous
  Country: US (occurrence: None)
  Receive Date: 20240307
  Receipt Date: 20240307
  Transmission Date: 20240410
  Serious: Yes (Hospitalization)
  Sender: FDA-Public Use
  Company Number: 2024A051786

PATIENT
  Age: 74 Year
  Sex: Male

DRUGS (1)
  1. TICAGRELOR [Suspect]
     Active Substance: TICAGRELOR
     Dosage: 5400 MG (60 TABLETS OF 90 MG).
     Route: 048

REACTIONS (3)
  - Headache [Recovering/Resolving]
  - Abdominal pain [Recovering/Resolving]
  - Intentional overdose [Recovering/Resolving]
